FAERS Safety Report 11001676 (Version 1)
Quarter: 2015Q2

REPORT INFORMATION
  Report Type: Spontaneous
  Country: AT (occurrence: AT)
  Receive Date: 20150408
  Receipt Date: 20150408
  Transmission Date: 20150821
  Serious: Yes (Death, Other)
  Sender: FDA-Public Use
  Company Number: PHHY2015AT038811

PATIENT
  Age: 55 Year
  Sex: Female

DRUGS (9)
  1. PEGYLATED LIPOSOMAL DOXORUBICIN HCL [Concomitant]
     Active Substance: DOXORUBICIN HYDROCHLORIDE
     Indication: METASTASES TO BREAST
     Dosage: 40 MG/M2, UNK
  2. LAPATINIB [Suspect]
     Active Substance: LAPATINIB
     Indication: METASTASES TO BREAST
     Dosage: 1250 MG, QD
     Route: 065
  3. TRASTUZUMAB [Suspect]
     Active Substance: TRASTUZUMAB
     Indication: METASTASES TO BREAST
     Dosage: 6 MG/KG, UNK
     Route: 065
  4. DOCETAXEL. [Suspect]
     Active Substance: DOCETAXEL
     Indication: METASTASES TO BREAST
     Dosage: 100 MG/M2, UNK
     Route: 065
  5. CARBOPLATIN. [Suspect]
     Active Substance: CARBOPLATIN
     Indication: METASTASES TO BREAST
     Dosage: 5 MG, AUC
     Route: 065
  6. DOCETAXEL. [Suspect]
     Active Substance: DOCETAXEL
     Dosage: 75 MG/M2, UNK
     Route: 065
  7. BEVACIZUMAB [Concomitant]
     Active Substance: BEVACIZUMAB
     Indication: METASTASES TO BREAST
     Dosage: 15 MG/KG, UNK
     Route: 065
  8. CAPECITABINE. [Suspect]
     Active Substance: CAPECITABINE
     Indication: METASTASES TO BREAST
     Dosage: 1250 MG/M2, BID
     Route: 065
  9. LISINOPRIL. [Concomitant]
     Active Substance: LISINOPRIL
     Indication: HYPERTENSION
     Route: 065

REACTIONS (5)
  - Death [Fatal]
  - Metastases to breast [Unknown]
  - Lymphangiosis carcinomatosa [Unknown]
  - Neuropathy peripheral [Unknown]
  - Malignant neoplasm progression [Unknown]
